FAERS Safety Report 10802568 (Version 2)
Quarter: 2015Q1

REPORT INFORMATION
  Report Type: Spontaneous
  Country: JP (occurrence: JP)
  Receive Date: 20150217
  Receipt Date: 20150313
  Transmission Date: 20150721
  Serious: Yes (Other)
  Sender: FDA-Public Use
  Company Number: JP-009507513-1502JPN006869

PATIENT
  Age: 85 Year
  Sex: Male

DRUGS (6)
  1. RIVASTACH [Suspect]
     Active Substance: RIVASTIGMINE
     Dosage: 18 MG ONCE A DAY
     Route: 062
     Dates: start: 20141120, end: 20141208
  2. GLACTIV [Suspect]
     Active Substance: SITAGLIPTIN
     Indication: TYPE 2 DIABETES MELLITUS
     Dosage: 50 MG ONCE A DAY
     Route: 048
     Dates: start: 20140219
  3. RIVASTACH [Suspect]
     Active Substance: RIVASTIGMINE
     Dosage: 13.5 MG ONCE A DAY
     Route: 062
     Dates: start: 201411, end: 20141119
  4. RIVASTACH [Suspect]
     Active Substance: RIVASTIGMINE
     Indication: DEMENTIA ALZHEIMER^S TYPE
     Dosage: 4.5 MG ONCE A DAY
     Route: 062
     Dates: start: 20140605, end: 201411
  5. RIVASTACH [Suspect]
     Active Substance: RIVASTIGMINE
     Dosage: 13.5 MG ONCE A DAY
     Route: 062
     Dates: start: 201411, end: 20141119
  6. RIVASTACH [Suspect]
     Active Substance: RIVASTIGMINE
     Dosage: 13.5 MG, QD
     Route: 048
     Dates: start: 20141209

REACTIONS (1)
  - Blood glucose increased [Recovered/Resolved]

NARRATIVE: CASE EVENT DATE: 20140324
